FAERS Safety Report 5534159-X (Version None)
Quarter: 2007Q4

REPORT INFORMATION
  Report Type: 
  Country: None (occurrence: None)
  Receive Date: 20071130
  Receipt Date: 20071121
  Transmission Date: 20080405
  Serious: Yes (Hospitalization)
  Sender: FDA-Public Use
  Company Number: 2007SP023374

PATIENT
  Age: 27 Year
  Sex: Male
  Weight: 80 kg

DRUGS (2)
  1. PEG-INTRON [Suspect]
     Indication: HEPATITIS B
     Dosage: 120 MCG;QW;SC
     Route: 058
     Dates: start: 20071025, end: 20071115
  2. PEG-INTRON [Suspect]

REACTIONS (8)
  - ALANINE AMINOTRANSFERASE INCREASED [None]
  - ANOREXIA [None]
  - ASPARTATE AMINOTRANSFERASE INCREASED [None]
  - ASTHENIA [None]
  - BLOOD BILIRUBIN INCREASED [None]
  - NAUSEA [None]
  - OCULAR ICTERUS [None]
  - VOMITING [None]
